FAERS Safety Report 8079439-1 (Version None)
Quarter: 2012Q1

REPORT INFORMATION
  Report Type: 
  Country: None (occurrence: None)
  Receive Date: 20120128
  Receipt Date: 20110825
  Transmission Date: 20120608
  Serious: No
  Sender: FDA-Public Use
  Company Number: US-ABBOTT-11P-163-0849308-00

PATIENT
  Age: 46 Year
  Sex: Female

DRUGS (2)
  1. LEVOTHYROXINE SODIUM [Concomitant]
     Indication: HYPOTHYROIDISM
     Route: 048
     Dates: start: 20090101
  2. HUMIRA [Suspect]
     Indication: PSORIASIS
     Dates: start: 20110701

REACTIONS (1)
  - FUNGAL INFECTION [None]
